FAERS Safety Report 4722051-X (Version None)
Quarter: 2005Q3

REPORT INFORMATION
  Report Type: 
  Country: None (occurrence: None)
  Receive Date: 20050722
  Receipt Date: 20050713
  Transmission Date: 20060218
  Serious: Yes (Hospitalization)
  Sender: FDA-Public Use
  Company Number: IT-ROCHE-410841

PATIENT
  Age: 22 Year
  Sex: Male

DRUGS (1)
  1. ROACCUTAN [Suspect]
     Indication: ACNE
     Route: 048
     Dates: start: 20050412, end: 20050428

REACTIONS (4)
  - COLITIS [None]
  - CUTANEOUS VASCULITIS [None]
  - ENTERITIS [None]
  - STOMATITIS [None]
